FAERS Safety Report 7978640-2 (Version None)
Quarter: 2011Q4

REPORT INFORMATION
  Report Type: 
  Country: None (occurrence: None)
  Receive Date: 20111202
  Receipt Date: 20111125
  Transmission Date: 20120403
  Serious: Yes (Hospitalization)
  Sender: FDA-Public Use
  Company Number: 2011SP055514

PATIENT
  Age: 31 Year
  Sex: Female
  Weight: 92 kg

DRUGS (1)
  1. IMPLANON [Suspect]
     Indication: CONTRACEPTION
     Dosage: 1 DF
     Dates: start: 20090323

REACTIONS (2)
  - THYROID CYST [None]
  - MENSTRUATION IRREGULAR [None]
